FAERS Safety Report 14739494 (Version 1)
Quarter: 2018Q2

REPORT INFORMATION
  Report Type: Report from Study
  Country: BR (occurrence: BR)
  Receive Date: 20180410
  Receipt Date: 20180410
  Transmission Date: 20180711
  Serious: Yes (Other)
  Sender: FDA-Public Use
  Company Number: BR-ROCHE-2100557

PATIENT
  Sex: Female
  Weight: 77 kg

DRUGS (4)
  1. KADCYLA [Suspect]
     Active Substance: ADO-TRASTUZUMAB EMTANSINE
     Indication: HER-2 POSITIVE BREAST CANCER
     Dosage: AS SECOND-LINE?SHE RECEIVED 48 CYCLES OF 3.6MG/KG OF TRASTUZUMAB EMTANSINE IN SECOND-LINE OF TREATME
     Route: 065
     Dates: start: 20150630, end: 20180329
  2. PERJETA [Suspect]
     Active Substance: PERTUZUMAB
     Indication: HER-2 POSITIVE BREAST CANCER
     Dosage: FIRST-LINE OF THERAPY?SHE RECEIVED 9 CYCLES OF PERTUZUMAB IN FIRST-LINE OF TREATMENT. THE LOADING PE
     Route: 065
     Dates: start: 20150101, end: 20150630
  3. TAXOL [Concomitant]
     Active Substance: PACLITAXEL
     Indication: HER-2 POSITIVE BREAST CANCER
     Dosage: FIRST-LINE OF THERAPY
     Route: 065
     Dates: start: 20150101, end: 20150630
  4. HERCEPTIN [Suspect]
     Active Substance: TRASTUZUMAB
     Indication: HER-2 POSITIVE BREAST CANCER
     Dosage: FIRST-LINE OF THERAPY?SHE RECEIVED 26 CYCLES OF TRASTUZUMAB IN FIRST-LINE OF TREATMENT. INITIAL DOSE
     Route: 065
     Dates: start: 20150101, end: 20150630

REACTIONS (2)
  - Drug ineffective [Unknown]
  - Disease recurrence [Unknown]
